FAERS Safety Report 5306311-X (Version None)
Quarter: 2007Q2

REPORT INFORMATION
  Report Type: 
  Country: None (occurrence: None)
  Receive Date: 20070424
  Receipt Date: 20070416
  Transmission Date: 20071010
  Serious: Yes (Other)
  Sender: FDA-Public Use
  Company Number: US-ABBOTT-07P-163-0365165-00

PATIENT
  Sex: Female
  Weight: 49.94 kg

DRUGS (7)
  1. DEPAKOTE [Suspect]
     Indication: MIGRAINE
     Route: 048
     Dates: start: 20051001, end: 20070328
  2. DEPAKOTE [Suspect]
     Route: 048
     Dates: start: 20070328, end: 20070330
  3. DEPAKOTE [Suspect]
     Route: 048
     Dates: start: 20070330, end: 20070401
  4. DEPAKOTE [Suspect]
     Route: 048
     Dates: start: 20070401, end: 20070403
  5. ESTROGEN HORMONE [Concomitant]
     Indication: HYSTERECTOMY
  6. CYMBALTA [Concomitant]
     Indication: DEPRESSION
  7. IMITREX [Concomitant]
     Indication: MIGRAINE

REACTIONS (3)
  - CONVULSION [None]
  - GAIT DISTURBANCE [None]
  - SLEEP WALKING [None]
